FAERS Safety Report 25834427 (Version 1)
Quarter: 2025Q3

REPORT INFORMATION
  Report Type: Report from Study
  Country: US (occurrence: US)
  Receive Date: 20250923
  Receipt Date: 20250923
  Transmission Date: 20251021
  Serious: No
  Sender: BIOVITRUM
  Company Number: US-BIOVITRUM-2025-US-011281

PATIENT
  Age: 72 Year
  Sex: Female

DRUGS (1)
  1. KINERET [Suspect]
     Active Substance: ANAKINRA
     Indication: Rheumatoid arthritis
     Route: 058
     Dates: start: 20250730

REACTIONS (7)
  - Arterial occlusive disease [Unknown]
  - Feeling abnormal [Unknown]
  - Headache [Unknown]
  - Nausea [Unknown]
  - Asthenia [Unknown]
  - Depression [Unknown]
  - Pain [Unknown]
